FAERS Safety Report 4332022-3 (Version None)
Quarter: 2004Q2

REPORT INFORMATION
  Report Type: 
  Country: None (occurrence: None)
  Receive Date: 20040405
  Receipt Date: 20040329
  Transmission Date: 20050107
  Serious: Yes (Death)
  Sender: FDA-Public Use
  Company Number: PHFR2004GB01562

PATIENT
  Age: 47 Year
  Sex: Male

DRUGS (5)
  1. CYCLOSPORINE [Suspect]
     Indication: GRAFT VERSUS HOST DISEASE
     Route: 065
  2. MABCAMPATH [Suspect]
     Indication: BONE MARROW TRANSPLANT
     Dosage: 20MG/D, DAYS -8 TO-4
     Route: 065
  3. FLUDARABINE PHOSPHATE [Suspect]
     Indication: BONE MARROW TRANSPLANT
     Dosage: 30MG/M2 DAYS -7 TO -3
     Route: 065
  4. MELPHALAN [Suspect]
     Indication: BONE MARROW TRANSPLANT
     Dosage: 140MG/M2 DAY -2
     Route: 065
  5. CORTICOSTEROIDS [Suspect]

REACTIONS (4)
  - ADENOVIRUS INFECTION [None]
  - DIARRHOEA [None]
  - MULTI-ORGAN FAILURE [None]
  - PNEUMONIA VIRAL [None]
